FAERS Safety Report 17297313 (Version 1)
Quarter: 2020Q1

REPORT INFORMATION
  Report Type: Spontaneous
  Country: US (occurrence: US)
  Receive Date: 20200121
  Receipt Date: 20200121
  Transmission Date: 20200409
  Serious: No
  Sender: FDA-Public Use
  Company Number: US-LEXICON PHARMACEUTICALS, INC-20-1606-00039

PATIENT

DRUGS (1)
  1. XERMELO [Suspect]
     Active Substance: TELOTRISTAT ETHYL
     Indication: CARCINOID SYNDROME
     Dates: start: 20191225

REACTIONS (3)
  - Dizziness [Unknown]
  - Malaise [Unknown]
  - Abdominal pain [Unknown]
